FAERS Safety Report 17235298 (Version 1)
Quarter: 2020Q1

REPORT INFORMATION
  Report Type: Spontaneous
  Country: US (occurrence: US)
  Receive Date: 20200103
  Receipt Date: 20200103
  Transmission Date: 20200409
  Serious: No
  Sender: FDA-Public Use
  Company Number: None

PATIENT
  Age: 78 Year
  Sex: Female

DRUGS (10)
  1. MULTAQ [Concomitant]
     Active Substance: DRONEDARONE
  2. FUROSEMIDE. [Concomitant]
     Active Substance: FUROSEMIDE
  3. FASLODEX [Concomitant]
     Active Substance: FULVESTRANT
  4. XGEVA [Concomitant]
     Active Substance: DENOSUMAB
  5. RESTASIS [Concomitant]
     Active Substance: CYCLOSPORINE
  6. IBRANCE [Suspect]
     Active Substance: PALBOCICLIB
     Route: 048
  7. HERCEPTIN [Concomitant]
     Active Substance: TRASTUZUMAB
  8. METOPROLOL. [Concomitant]
     Active Substance: METOPROLOL
  9. SYNTHROID [Concomitant]
     Active Substance: LEVOTHYROXINE SODIUM
  10. PRADAXA [Concomitant]
     Active Substance: DABIGATRAN ETEXILATE MESYLATE

REACTIONS (1)
  - Cyst [None]

NARRATIVE: CASE EVENT DATE: 20200102
